FAERS Safety Report 4394860-0 (Version None)
Quarter: 2004Q3

REPORT INFORMATION
  Report Type: 
  Country: None (occurrence: None)
  Receive Date: 20040706
  Receipt Date: 20040622
  Transmission Date: 20050211
  Serious: Yes (Hospitalization)
  Sender: FDA-Public Use
  Company Number: 2004-02795

PATIENT
  Age: 3 Year
  Sex: Male

DRUGS (3)
  1. METHYLPREDNISOLONE ACETATE [Suspect]
     Indication: DEMYELINATING POLYNEUROPATHY
     Dosage: 20 MG/KG/D 3D THEN ONCE AFTER 2WK, INTRAVENOUS
     Route: 042
  2. IMMUNOGLOBULINS (IMMUNOGLOBULINS) [Concomitant]
  3. AZATHIOPRINE [Concomitant]

REACTIONS (6)
  - ASTHENIA [None]
  - DYSPNOEA [None]
  - GENERAL PHYSICAL HEALTH DETERIORATION [None]
  - MUSCULAR WEAKNESS [None]
  - OPHTHALMOPLEGIA [None]
  - PARALYSIS [None]
